FAERS Safety Report 5280071-3 (Version None)
Quarter: 2007Q1

REPORT INFORMATION
  Report Type: 
  Country: None (occurrence: None)
  Receive Date: 20061229
  Receipt Date: 20061020
  Transmission Date: 20070707
  Serious: Yes (Other)
  Sender: FDA-Public Use
  Company Number: 2006UW20306

PATIENT
  Age: 67 Year
  Sex: Female
  Weight: 90.718 kg

DRUGS (6)
  1. CRESTOR [Suspect]
     Indication: BLOOD CHOLESTEROL INCREASED
     Dosage: 20 MG PO
     Route: 048
     Dates: start: 20060801
  2. CRESTOR [Suspect]
     Indication: BLOOD CHOLESTEROL INCREASED
  3. HYDROCHLOROTHIAZIDE [Concomitant]
  4. NORVASC [Concomitant]
  5. ENALAPRIL MALEATE [Concomitant]
  6. UNSPECIFIED CHOLESTEROL MEDICATION [Concomitant]

REACTIONS (2)
  - GAIT DISTURBANCE [None]
  - MYALGIA [None]
